FAERS Safety Report 23585872 (Version 1)
Quarter: 2024Q1

REPORT INFORMATION
  Report Type: Spontaneous
  Country: US (occurrence: US)
  Receive Date: 20240301
  Receipt Date: 20240301
  Transmission Date: 20240410
  Serious: No
  Sender: FDA-Public Use
  Company Number: US-Merck Healthcare KGaA-2024010881

PATIENT
  Age: 72 Year
  Sex: Female
  Weight: 42.64 kg

DRUGS (11)
  1. MAVENCLAD [Suspect]
     Active Substance: CLADRIBINE
     Indication: Multiple sclerosis
     Dosage: FIRST CYCLE
     Route: 048
     Dates: start: 20240201
  2. SYNTHROID [Concomitant]
     Active Substance: LEVOTHYROXINE SODIUM
     Indication: Product used for unknown indication
     Route: 048
     Dates: start: 20240131
  3. POTASSIUM CHLORIDE EXTENDED RELEASE [Concomitant]
     Active Substance: POTASSIUM CHLORIDE
     Indication: Product used for unknown indication
     Route: 048
     Dates: start: 20240131
  4. ERGOCALCIFEROL [Concomitant]
     Active Substance: ERGOCALCIFEROL
     Indication: Product used for unknown indication
     Route: 048
     Dates: start: 20240131
  5. CALCIUM ACETATE [Concomitant]
     Active Substance: CALCIUM ACETATE
     Indication: Product used for unknown indication
     Route: 048
     Dates: start: 20240131
  6. VITAMIN B2 [Concomitant]
     Active Substance: RIBOFLAVIN
     Indication: Product used for unknown indication
     Route: 048
     Dates: start: 20240131
  7. CRESTOR [Concomitant]
     Active Substance: ROSUVASTATIN CALCIUM
     Indication: Product used for unknown indication
     Route: 048
     Dates: start: 20240131
  8. ATENOLOL [Concomitant]
     Active Substance: ATENOLOL
     Indication: Product used for unknown indication
     Route: 048
     Dates: start: 20240131
  9. VITAMIN D3 [Concomitant]
     Active Substance: CHOLECALCIFEROL
     Indication: Product used for unknown indication
     Route: 048
     Dates: start: 20240131
  10. FOLIC ACID [Concomitant]
     Active Substance: FOLIC ACID
     Indication: Product used for unknown indication
     Route: 048
     Dates: start: 20240131
  11. NORVASC [Concomitant]
     Active Substance: AMLODIPINE BESYLATE
     Indication: Product used for unknown indication
     Route: 048
     Dates: start: 20240131

REACTIONS (4)
  - Condition aggravated [Unknown]
  - Memory impairment [Unknown]
  - Fatigue [Recovering/Resolving]
  - Anxiety [Recovering/Resolving]
